FAERS Safety Report 4488183-9 (Version None)
Quarter: 2004Q4

REPORT INFORMATION
  Report Type: 
  Country: None (occurrence: None)
  Receive Date: 20041028
  Receipt Date: 20041026
  Transmission Date: 20050328
  Serious: Yes (Hospitalization)
  Sender: FDA-Public Use
  Company Number: PHNU2004DE03651

PATIENT
  Age: 58 Year
  Sex: Male

DRUGS (1)
  1. LIORESAL [Suspect]
     Dosage: 15 DF, ONCE/SINGLE
     Route: 048
     Dates: start: 20041024, end: 20041024

REACTIONS (7)
  - BRADYCARDIA [None]
  - BRADYPNOEA [None]
  - HYPOTONIA [None]
  - INTENTIONAL OVERDOSE [None]
  - LOSS OF CONSCIOUSNESS [None]
  - MYOCLONIC EPILEPSY [None]
  - SOPOR [None]
